FAERS Safety Report 16708696 (Version 6)
Quarter: 2020Q1

REPORT INFORMATION
  Report Type: Report from Study
  Country: JP (occurrence: JP)
  Receive Date: 20190816
  Receipt Date: 20200212
  Transmission Date: 20200409
  Serious: Yes (Hospitalization, Other)
  Sender: FDA-Public Use
  Company Number: JP-ROCHE-2373768

PATIENT
  Age: 54 Year
  Sex: Male
  Weight: 72 kg

DRUGS (44)
  1. TACROLIMUS MONOHYDRATE [Suspect]
     Active Substance: TACROLIMUS
     Route: 048
     Dates: start: 20190222, end: 20190226
  2. CHLORPHENIRAMINE MALEATE. [Concomitant]
     Active Substance: CHLORPHENIRAMINE MALEATE
     Route: 048
     Dates: start: 20190122, end: 20190122
  3. HYDROCORTISONE SODIUM SUCCINATE [Concomitant]
     Active Substance: HYDROCORTISONE SODIUM SUCCINATE
     Route: 042
     Dates: start: 20190122, end: 20190122
  4. METHYLPREDNISOLONE SODIUM SUCCINATE. [Concomitant]
     Active Substance: METHYLPREDNISOLONE SODIUM SUCCINATE
     Dosage: DOSE INTERVAL UNCERTAINTY
     Route: 042
     Dates: start: 20190205, end: 20190205
  5. METHYLPREDNISOLONE SODIUM SUCCINATE. [Concomitant]
     Active Substance: METHYLPREDNISOLONE SODIUM SUCCINATE
     Dosage: DOSE INTERVAL UNCERTAINTY
     Route: 042
     Dates: start: 20190219, end: 20190225
  6. RITUXIMAB. [Suspect]
     Active Substance: RITUXIMAB
     Indication: PROPHYLAXIS AGAINST TRANSPLANT REJECTION
     Route: 041
     Dates: start: 20190122
  7. TACROLIMUS MONOHYDRATE [Suspect]
     Active Substance: TACROLIMUS
     Route: 048
     Dates: start: 20190227, end: 20190325
  8. TACROLIMUS MONOHYDRATE [Suspect]
     Active Substance: TACROLIMUS
     Route: 048
     Dates: start: 20190326
  9. METHYLPREDNISOLONE. [Suspect]
     Active Substance: METHYLPREDNISOLONE
     Indication: PROPHYLAXIS AGAINST TRANSPLANT REJECTION
     Route: 048
     Dates: start: 20190226, end: 20190304
  10. ACETAMINOPHEN. [Concomitant]
     Active Substance: ACETAMINOPHEN
  11. CHLORPHENIRAMINE MALEATE. [Concomitant]
     Active Substance: CHLORPHENIRAMINE MALEATE
     Route: 048
     Dates: start: 20190204, end: 20190204
  12. HYDROCORTISONE SODIUM SUCCINATE [Concomitant]
     Active Substance: HYDROCORTISONE SODIUM SUCCINATE
     Route: 042
     Dates: start: 20190205, end: 20190205
  13. HYDROCORTISONE SODIUM SUCCINATE [Concomitant]
     Active Substance: HYDROCORTISONE SODIUM SUCCINATE
     Route: 042
     Dates: start: 20190219, end: 20190219
  14. ACICLOVIR [Concomitant]
     Active Substance: ACYCLOVIR
     Route: 042
     Dates: start: 20190206, end: 20190211
  15. MYCOPHENOLATE MOFETIL. [Suspect]
     Active Substance: MYCOPHENOLATE MOFETIL
     Indication: PROPHYLAXIS AGAINST TRANSPLANT REJECTION
     Route: 048
     Dates: start: 20190129, end: 20190204
  16. MYCOPHENOLATE MOFETIL. [Suspect]
     Active Substance: MYCOPHENOLATE MOFETIL
     Route: 048
     Dates: start: 20190206, end: 20190405
  17. HYDROCORTISONE SODIUM SUCCINATE [Concomitant]
     Active Substance: HYDROCORTISONE SODIUM SUCCINATE
     Route: 042
     Dates: start: 20190207, end: 20190207
  18. METHYLPREDNISOLONE SODIUM SUCCINATE. [Concomitant]
     Active Substance: METHYLPREDNISOLONE SODIUM SUCCINATE
     Dosage: DOSE INTERVAL UNCERTAINTY
     Route: 042
     Dates: start: 20190211, end: 20190211
  19. EVEROLIMUS. [Concomitant]
     Active Substance: EVEROLIMUS
     Route: 048
     Dates: start: 20190405
  20. FUNGUARD [Concomitant]
     Active Substance: MICAFUNGIN SODIUM
     Route: 042
     Dates: start: 20190206, end: 20190211
  21. METHYLPREDNISOLONE SODIUM SUCCINATE. [Concomitant]
     Active Substance: METHYLPREDNISOLONE SODIUM SUCCINATE
     Dosage: DOSE INTERVAL UNCERTAINTY
     Route: 042
     Dates: start: 20190207, end: 20190207
  22. FLUMARIN [FLOMOXEF SODIUM] [Concomitant]
     Active Substance: FLOMOXEF SODIUM
     Route: 042
     Dates: start: 20190205, end: 20190214
  23. TACROLIMUS MONOHYDRATE [Suspect]
     Active Substance: TACROLIMUS
     Route: 048
     Dates: start: 20190206, end: 20190212
  24. HYDROCORTISONE SODIUM SUCCINATE [Concomitant]
     Active Substance: HYDROCORTISONE SODIUM SUCCINATE
     Route: 042
     Dates: start: 20190204, end: 20190204
  25. METHYLPREDNISOLONE SODIUM SUCCINATE. [Concomitant]
     Active Substance: METHYLPREDNISOLONE SODIUM SUCCINATE
     Dosage: DOSE INTERVAL UNCERTAINTY
     Route: 042
     Dates: start: 20190206, end: 20190206
  26. METHYLPREDNISOLONE SODIUM SUCCINATE. [Concomitant]
     Active Substance: METHYLPREDNISOLONE SODIUM SUCCINATE
     Dosage: DOSE INTERVAL UNCERTAINTY
     Route: 042
     Dates: start: 20190209, end: 20190209
  27. METHYLPREDNISOLONE SODIUM SUCCINATE. [Concomitant]
     Active Substance: METHYLPREDNISOLONE SODIUM SUCCINATE
     Dosage: DOSE INTERVAL UNCERTAINTY
     Route: 042
     Dates: start: 20190212, end: 20190218
  28. RITUXIMAB. [Suspect]
     Active Substance: RITUXIMAB
     Route: 041
     Dates: start: 20190204, end: 20190204
  29. TACROLIMUS MONOHYDRATE [Suspect]
     Active Substance: TACROLIMUS
     Route: 048
     Dates: start: 20190218, end: 20190221
  30. METHYLPREDNISOLONE. [Suspect]
     Active Substance: METHYLPREDNISOLONE
     Route: 048
     Dates: start: 20190305, end: 20190401
  31. METHYLPREDNISOLONE. [Suspect]
     Active Substance: METHYLPREDNISOLONE
     Route: 048
     Dates: start: 20190507
  32. CALONAL [Concomitant]
     Active Substance: ACETAMINOPHEN
     Route: 048
     Dates: start: 20190122
  33. HYDROCORTISONE SODIUM SUCCINATE [Concomitant]
     Active Substance: HYDROCORTISONE SODIUM SUCCINATE
     Route: 042
     Dates: start: 20190210, end: 20190210
  34. METHYLPREDNISOLONE SODIUM SUCCINATE. [Concomitant]
     Active Substance: METHYLPREDNISOLONE SODIUM SUCCINATE
     Dosage: DOSE INTERVAL UNCERTAINTY
     Route: 042
     Dates: start: 20190208, end: 20190208
  35. TACROLIMUS MONOHYDRATE [Suspect]
     Active Substance: TACROLIMUS
     Indication: PROPHYLAXIS AGAINST TRANSPLANT REJECTION
     Route: 048
     Dates: start: 20190131, end: 20190204
  36. METHYLPREDNISOLONE. [Suspect]
     Active Substance: METHYLPREDNISOLONE
     Route: 048
     Dates: start: 20190402, end: 20190506
  37. HYDROCORTISONE SODIUM SUCCINATE [Concomitant]
     Active Substance: HYDROCORTISONE SODIUM SUCCINATE
     Route: 042
     Dates: start: 20190206, end: 20190206
  38. HYDROCORTISONE SODIUM SUCCINATE [Concomitant]
     Active Substance: HYDROCORTISONE SODIUM SUCCINATE
     Route: 042
     Dates: start: 20190208, end: 20190208
  39. METHYLPREDNISOLONE SODIUM SUCCINATE. [Concomitant]
     Active Substance: METHYLPREDNISOLONE SODIUM SUCCINATE
     Dosage: DOSE INTERVAL UNCERTAINTY
     Route: 042
     Dates: start: 20190210, end: 20190210
  40. BASILIXIMAB [Concomitant]
     Active Substance: BASILIXIMAB
     Route: 042
     Dates: start: 20190205, end: 20190205
  41. BASILIXIMAB [Concomitant]
     Active Substance: BASILIXIMAB
     Route: 042
     Dates: start: 20190209, end: 20190209
  42. TACROLIMUS MONOHYDRATE [Suspect]
     Active Substance: TACROLIMUS
     Route: 048
     Dates: start: 20190213, end: 20190217
  43. CALONAL [Concomitant]
     Active Substance: ACETAMINOPHEN
     Route: 048
     Dates: start: 20190204
  44. HYDROCORTISONE SODIUM SUCCINATE [Concomitant]
     Active Substance: HYDROCORTISONE SODIUM SUCCINATE
     Route: 042
     Dates: start: 20190209, end: 20190209

REACTIONS (5)
  - Cytomegalovirus infection [Recovering/Resolving]
  - Abdominal abscess [Recovering/Resolving]
  - Hepatitis C [Recovering/Resolving]
  - Platelet count decreased [Recovering/Resolving]
  - Cholangitis [Recovered/Resolved]

NARRATIVE: CASE EVENT DATE: 20190205
